FAERS Safety Report 12760096 (Version 2)
Quarter: 2016Q4

REPORT INFORMATION
  Report Type: Spontaneous
  Country: DE (occurrence: DE)
  Receive Date: 20160919
  Receipt Date: 20161118
  Transmission Date: 20170207
  Serious: Yes (Other)
  Sender: FDA-Public Use
  Company Number: DE-DEPOMED, INC.-DE-2016DEP012102

PATIENT
  Age: 82 Year
  Sex: Female

DRUGS (1)
  1. TAPENTADOL HYDROCHLORIDE [Suspect]
     Active Substance: TAPENTADOL HYDROCHLORIDE
     Indication: PAIN
     Dosage: 100 MG, BID
     Route: 048
     Dates: end: 2016

REACTIONS (4)
  - Eye opacity [Unknown]
  - Retinal haemorrhage [Unknown]
  - Vision blurred [Unknown]
  - Neovascular age-related macular degeneration [Unknown]
